FAERS Safety Report 25347122 (Version 2)
Quarter: 2025Q2

REPORT INFORMATION
  Report Type: Spontaneous
  Country: ES (occurrence: ES)
  Receive Date: 20250522
  Receipt Date: 20250620
  Transmission Date: 20250716
  Serious: Yes (Hospitalization, Other)
  Sender: PFIZER
  Company Number: None

PATIENT
  Age: 55 Year
  Sex: Female

DRUGS (3)
  1. LORAZEPAM [Interacting]
     Active Substance: LORAZEPAM
     Route: 048
     Dates: start: 20241203, end: 20241203
  2. ACETAMINOPHEN [Interacting]
     Active Substance: ACETAMINOPHEN
     Route: 048
     Dates: start: 20241203, end: 20241203
  3. METAMIZOL [Interacting]
     Active Substance: METAMIZOLE SODIUM
     Route: 048
     Dates: start: 20241203, end: 20241203

REACTIONS (5)
  - Hepatic cytolysis [Recovered/Resolved]
  - Hypertransaminasaemia [Recovered/Resolved]
  - Suicide attempt [Unknown]
  - Intentional overdose [Recovered/Resolved]
  - Drug interaction [Unknown]

NARRATIVE: CASE EVENT DATE: 20241204
